FAERS Safety Report 9191601 (Version 1)
Quarter: 2013Q1

REPORT INFORMATION
  Report Type: Other
  Country: IT (occurrence: IT)
  Receive Date: 20130326
  Receipt Date: 20130326
  Transmission Date: 20140127
  Serious: Yes (Hospitalization)
  Sender: FDA-Public Use
  Company Number: IT-WATSON-2013-05189

PATIENT
  Age: 49 Year
  Sex: Male

DRUGS (5)
  1. ZOLPIDEM TARTRATE [Suspect]
     Indication: PRODUCT USED FOR UNKNOWN INDICATION
     Dosage: 10 TABLET, OVERDOSE
     Route: 048
     Dates: start: 20130115, end: 20130115
  2. ZOLPIDEM TARTRATE (UNKNOWN) [Suspect]
     Dosage: UNK, DAILY
     Route: 048
  3. LORAZEPAM [Suspect]
     Indication: PRODUCT USED FOR UNKNOWN INDICATION
     Dosage: 10 TABLET, OVERDOSE
     Route: 048
     Dates: start: 20130115, end: 20130115
  4. LORAZEPAM [Suspect]
     Dosage: UNK, DAILY
     Route: 048
  5. ETHANOL [Suspect]
     Indication: PRODUCT USED FOR UNKNOWN INDICATION
     Dosage: 2.5 LITERS, UNK
     Route: 048
     Dates: start: 20130115, end: 20130115

REACTIONS (4)
  - Hypokinesia [Recovered/Resolved]
  - Drug abuse [Recovered/Resolved]
  - Intentional drug misuse [Recovered/Resolved]
  - Overdose [Recovered/Resolved]
